FAERS Safety Report 8072480-4 (Version None)
Quarter: 2012Q1

REPORT INFORMATION
  Report Type: 
  Country: None (occurrence: None)
  Receive Date: 20120126
  Receipt Date: 20120118
  Transmission Date: 20120608
  Serious: Yes (Other)
  Sender: FDA-Public Use
  Company Number: US-PFIZER INC-2012014494

PATIENT
  Sex: Male

DRUGS (1)
  1. REVATIO [Suspect]
     Indication: PULMONARY ARTERIAL HYPERTENSION
     Dosage: 20 MG, 3X/DAY (TID)
     Dates: start: 20100421

REACTIONS (3)
  - SPINAL FRACTURE [None]
  - OXYGEN SATURATION ABNORMAL [None]
  - SLEEP APNOEA SYNDROME [None]
